FAERS Safety Report 16236966 (Version 3)
Quarter: 2019Q2

REPORT INFORMATION
  Report Type: Report from Study
  Country: NL (occurrence: NL)
  Receive Date: 20190425
  Receipt Date: 20190604
  Transmission Date: 20190711
  Serious: Yes (Death, Other)
  Sender: FDA-Public Use
  Company Number: NL-TOLMAR, INC.-2019NL004027

PATIENT

DRUGS (7)
  1. SIMVASTATIN. [Concomitant]
     Active Substance: SIMVASTATIN
     Dosage: UNK
     Dates: start: 20181018
  2. OMEPRAZOLE. [Concomitant]
     Active Substance: OMEPRAZOLE
     Dosage: UNK
     Dates: start: 20181018
  3. PERINDOPRIL ARGININE [Concomitant]
     Active Substance: PERINDOPRIL ARGININE
     Dosage: UNK
     Dates: start: 20181018
  4. METOPROLOL. [Concomitant]
     Active Substance: METOPROLOL
     Dosage: UNK
     Dates: start: 20181018
  5. CLOPIDOGREL [Concomitant]
     Active Substance: CLOPIDOGREL BISULFATE
     Dosage: UNK
     Dates: start: 20190122
  6. ENZALUTAMIDE [Concomitant]
     Active Substance: ENZALUTAMIDE
     Dosage: 1 X PER DAY 4 PIECE
     Route: 048
     Dates: start: 20190401
  7. ELIGARD [Suspect]
     Active Substance: LEUPROLIDE ACETATE
     Indication: PROSTATE CANCER
     Dosage: 45 MG, EVERY 6 MONTHS
     Route: 058
     Dates: start: 20181018, end: 20181018

REACTIONS (6)
  - Metastases to lung [Unknown]
  - Metastases to lymph nodes [Unknown]
  - Terminal state [Fatal]
  - Hydronephrosis [Unknown]
  - Anaemia [Unknown]
  - Hormone-refractory prostate cancer [Unknown]

NARRATIVE: CASE EVENT DATE: 201902
